FAERS Safety Report 8623144 (Version 4)
Quarter: 2012Q4

REPORT INFORMATION
  Report Type: 
  Country: US (occurrence: US)
  Receive Date: 20120620
  Receipt Date: 20120910
  Transmission Date: 20130627
  Serious: No
  Sender: FDA-Public Use
  Company Number: US-PFIZER INC-2012144198

PATIENT
  Age: 54 Year
  Sex: Female

DRUGS (4)
  1. MORPHINE SULFATE [Suspect]
     Indication: PAIN
     Dosage: UNK
     Route: 042
     Dates: start: 2006
  2. MORPHINE SULFATE [Suspect]
     Dosage: UNK
     Route: 048
     Dates: start: 20110611, end: 20120430
  3. TYLENOL WITH CODEINE [Suspect]
     Indication: PAIN
     Dosage: 300-30 mg
  4. TYLENOL WITH CODEINE [Suspect]
     Dosage: 1-2 tabs, q 4-6
     Route: 048
     Dates: start: 20101116, end: 20120430

REACTIONS (4)
  - Drug hypersensitivity [Unknown]
  - Nausea [Not Recovered/Not Resolved]
  - Diarrhoea [Unknown]
  - Vomiting [Unknown]
